FAERS Safety Report 5598877-X (Version None)
Quarter: 2008Q1

REPORT INFORMATION
  Report Type: 
  Country: None (occurrence: None)
  Receive Date: 20080122
  Receipt Date: 20080117
  Transmission Date: 20080703
  Serious: Yes (Other)
  Sender: FDA-Public Use
  Company Number: US-BRISTOL-MYERS SQUIBB COMPANY-14018972

PATIENT
  Age: 37 Year
  Sex: Female

DRUGS (4)
  1. ORENCIA [Suspect]
     Indication: RHEUMATOID ARTHRITIS
  2. PREDNISONE [Concomitant]
  3. PLAQUENIL [Concomitant]
  4. METHOTREXATE [Concomitant]

REACTIONS (6)
  - FUNGAL INFECTION [None]
  - HEADACHE [None]
  - HERPES ZOSTER [None]
  - MIGRAINE [None]
  - SINUSITIS [None]
  - URINARY TRACT INFECTION [None]
